FAERS Safety Report 5160684-X (Version None)
Quarter: 2006Q4

REPORT INFORMATION
  Report Type: 
  Country: None (occurrence: None)
  Receive Date: 20060918
  Receipt Date: 20060706
  Transmission Date: 20070319
  Serious: Yes (Other)
  Sender: FDA-Public Use
  Company Number: PHEH2006US08654

PATIENT
  Age: 80 Year
  Sex: Female

DRUGS (5)
  1. FEMARA [Suspect]
     Indication: BREAST CANCER
     Dosage: 2.5 MG, QD, ORAL
     Route: 048
  2. TRIENTINE (TRIENTINE) [Concomitant]
  3. DETROL [Concomitant]
  4. ACTONEL [Concomitant]
  5. LIPITOR [Concomitant]

REACTIONS (2)
  - BONE DENSITY DECREASED [None]
  - VAGINAL HAEMORRHAGE [None]
